FAERS Safety Report 15129685 (Version 3)
Quarter: 2019Q1

REPORT INFORMATION
  Report Type: Spontaneous
  Country: US (occurrence: US)
  Receive Date: 20180711
  Receipt Date: 20190102
  Transmission Date: 20190417
  Serious: No
  Sender: FDA-Public Use
  Company Number: US-SA-2018SA181933

PATIENT
  Sex: Female

DRUGS (1)
  1. DUPIXENT [Suspect]
     Active Substance: DUPILUMAB
     Indication: DERMATITIS ATOPIC
     Dosage: 300 MG, QW
     Route: 058
     Dates: start: 20170605

REACTIONS (6)
  - Depression [Unknown]
  - Dermatitis [Unknown]
  - Drug ineffective [Unknown]
  - Dry eye [Unknown]
  - Affective disorder [Unknown]
  - Eye irritation [Unknown]

NARRATIVE: CASE EVENT DATE: 2018
